FAERS Safety Report 9247977 (Version 3)
Quarter: 2014Q1

REPORT INFORMATION
  Report Type: Spontaneous
  Country: CM (occurrence: CM)
  Receive Date: 20130423
  Receipt Date: 20140317
  Transmission Date: 20141002
  Serious: Yes (Hospitalization)
  Sender: FDA-Public Use
  Company Number: CM-009507513-1304CMR013540

PATIENT
  Age: 24 Year
  Sex: Female
  Weight: 56 kg

DRUGS (4)
  1. MECTIZAN [Suspect]
     Indication: ONCHOCERCIASIS
     Dosage: DOSE AS 4 TABLETS
     Route: 065
     Dates: start: 20120707
  2. MECTIZAN [Suspect]
     Indication: FILARIASIS LYMPHATIC
  3. ALBENDAZOLE [Suspect]
     Indication: ONCHOCERCIASIS
     Dosage: 1 TABLET
     Route: 065
     Dates: start: 20120707
  4. ALBENDAZOLE [Suspect]
     Indication: FILARIASIS LYMPHATIC

REACTIONS (3)
  - Feeling cold [Recovered/Resolved]
  - Pruritus generalised [Recovered/Resolved]
  - Decreased appetite [Recovered/Resolved]
